FAERS Safety Report 7721345-3 (Version None)
Quarter: 2011Q3

REPORT INFORMATION
  Report Type: 
  Country: None (occurrence: None)
  Receive Date: 20110831
  Receipt Date: 20110825
  Transmission Date: 20111222
  Serious: Yes (Hospitalization)
  Sender: FDA-Public Use
  Company Number: CA-ROCHE-791740

PATIENT
  Sex: Male

DRUGS (9)
  1. ASPIRIN [Concomitant]
  2. FOLIC ACID [Concomitant]
  3. METHOTREXATE [Concomitant]
  4. VITAMIN D [Concomitant]
  5. TOCILIZUMAB [Suspect]
     Indication: RHEUMATOID ARTHRITIS
     Dosage: THERAPY INTERRUPTED DUE TO AE
     Route: 042
     Dates: start: 20110411
  6. TOCILIZUMAB [Suspect]
     Route: 042
  7. CRESTOR [Concomitant]
  8. PREDNISONE [Concomitant]
  9. TRAMADOL HCL [Concomitant]
     Dosage: AS NEEDED

REACTIONS (1)
  - SCIATICA [None]
